FAERS Safety Report 19519907 (Version 1)
Quarter: 2021Q3

REPORT INFORMATION
  Report Type: Spontaneous
  Country: US (occurrence: US)
  Receive Date: 20210712
  Receipt Date: 20210712
  Transmission Date: 20211014
  Serious: Yes (Hospitalization, Other)
  Sender: FDA-Public Use
  Company Number: US-AMGEN-USASP2021105482

PATIENT
  Age: 23 Year
  Sex: Male

DRUGS (4)
  1. ENBREL [Suspect]
     Active Substance: ETANERCEPT
     Indication: ANKYLOSING SPONDYLITIS
     Dosage: UNK
     Route: 065
     Dates: start: 2017
  2. ENBREL [Suspect]
     Active Substance: ETANERCEPT
     Indication: ARTHRALGIA
     Dosage: UNK
     Route: 065
     Dates: start: 201806
  3. ENBREL [Suspect]
     Active Substance: ETANERCEPT
     Dosage: UNK
     Route: 065
     Dates: start: 201904
  4. PSILOCYBINE [Concomitant]
     Active Substance: PSILOCYBINE
     Dosage: UNK

REACTIONS (7)
  - Catatonia [Recovered/Resolved]
  - Psychomotor hyperactivity [Unknown]
  - Schizoaffective disorder bipolar type [Unknown]
  - Mania [Unknown]
  - Depression [Unknown]
  - Psychiatric symptom [Unknown]
  - Behaviour disorder [Unknown]

NARRATIVE: CASE EVENT DATE: 2017
